FAERS Safety Report 8061094 (Version 4)
Quarter: 2012Q4

REPORT INFORMATION
  Report Type: Report from Study
  Country: UG (occurrence: UG)
  Receive Date: 20110729
  Receipt Date: 20120924
  Transmission Date: 20130627
  Serious: Yes (Death, Disabling)
  Sender: FDA-Public Use
  Company Number: UG-ABBOTT-11P-165-0840561-00

PATIENT
  Age: 42 Year
  Sex: Female

DRUGS (6)
  1. ALUVIA TABLETS [Suspect]
     Indication: HIV INFECTION
     Route: 048
     Dates: start: 20100702
  2. ABACAVIR [Concomitant]
     Indication: HIV INFECTION
     Dates: start: 20120217
  3. ZIDOVUDINE [Concomitant]
     Indication: HIV INFECTION
     Dates: start: 20120217
  4. CLOTRIMAZOLE [Concomitant]
     Indication: PRODUCT USED FOR UNKNOWN INDICATION
     Dates: start: 20040329
  5. TENOFOVIR [Concomitant]
     Indication: HIV INFECTION
     Dates: start: 20100702
  6. LAMIVUDINE [Concomitant]
     Indication: HIV INFECTION
     Dates: start: 20100702

REACTIONS (3)
  - Central nervous system lesion [Not Recovered/Not Resolved]
  - Tremor [Fatal]
  - Cerebellar ataxia [Fatal]
